FAERS Safety Report 14835198 (Version 2)
Quarter: 2018Q2

REPORT INFORMATION
  Report Type: Report from Study
  Country: None (occurrence: US)
  Receive Date: 20180502
  Receipt Date: 20180514
  Transmission Date: 20180711
  Serious: Yes (Hospitalization, Other)
  Sender: FDA-Public Use
  Company Number: US-ABBVIE-18K-163-2336481-00

PATIENT
  Age: 76 Year
  Sex: Female
  Weight: 71.73 kg

DRUGS (2)
  1. HUMIRA [Suspect]
     Active Substance: ADALIMUMAB
     Route: 058
     Dates: start: 2016
  2. HUMIRA [Suspect]
     Active Substance: ADALIMUMAB
     Indication: RHEUMATOID ARTHRITIS
     Route: 058
     Dates: start: 2016, end: 2016

REACTIONS (11)
  - Drug ineffective [Unknown]
  - Fall [Recovered/Resolved]
  - Urinary tract infection [Recovering/Resolving]
  - Pleural effusion [Recovered/Resolved]
  - Femur fracture [Recovered/Resolved]
  - Age-related macular degeneration [Not Recovered/Not Resolved]
  - Arthralgia [Unknown]
  - Pulmonary thrombosis [Recovered/Resolved]
  - Clostridium difficile infection [Recovered/Resolved]
  - Blindness [Not Recovered/Not Resolved]
  - Nosocomial infection [Recovered/Resolved]

NARRATIVE: CASE EVENT DATE: 2016
